FAERS Safety Report 22214644 (Version 2)
Quarter: 2023Q2

REPORT INFORMATION
  Report Type: Other
  Country: GB (occurrence: GB)
  Receive Date: 20230415
  Receipt Date: 20230621
  Transmission Date: 20230721
  Serious: Yes (Hospitalization, Other)
  Sender: FDA-Public Use
  Company Number: GB-MACLEODS PHARMA EU LTD-MAC2023040755

PATIENT

DRUGS (47)
  1. PANTOPRAZOLE [Suspect]
     Active Substance: PANTOPRAZOLE
     Indication: Gastrooesophageal reflux disease
     Dosage: 10 MILLIGRAM, QD
     Route: 042
     Dates: start: 20230117, end: 20230301
  2. ONDANSETRON [Suspect]
     Active Substance: ONDANSETRON
     Indication: Vomiting
     Dosage: 3.5 MILLIGRAM, PRN (THREE TIMES A DAY)
     Route: 042
     Dates: start: 20230117
  3. AMINO ACIDS, SOURCE UNSPECIFIED [Suspect]
     Active Substance: AMINO ACIDS, SOURCE UNSPECIFIED
     Indication: Parenteral nutrition
     Dosage: UNK, 25 (COMPOUNDED PN 5 NIGHTS A WEEK)
     Route: 042
  4. AMINO ACIDS, SOURCE UNSPECIFIED [Suspect]
     Active Substance: AMINO ACIDS, SOURCE UNSPECIFIED
     Dosage: UNK, 25 (COMPOUNDED PN 5 NIGHTS A WEEK)
     Route: 042
  5. AMINO ACIDS, SOURCE UNSPECIFIED [Suspect]
     Active Substance: AMINO ACIDS, SOURCE UNSPECIFIED
     Dosage: UNK, 25 (COMPOUNDED PN 5 NIGHTS A WEEK)
     Route: 042
  6. CALCIUM CHLORIDE [Suspect]
     Active Substance: CALCIUM CHLORIDE
     Indication: Parenteral nutrition
     Dosage: UNK, COMPOUNDED PN 5 NIGHTS A WEEK
     Route: 042
  7. CALCIUM CHLORIDE [Suspect]
     Active Substance: CALCIUM CHLORIDE
     Dosage: UNK, COMPOUNDED PN 5 NIGHTS A WEEK
     Route: 042
  8. CALCIUM CHLORIDE [Suspect]
     Active Substance: CALCIUM CHLORIDE
     Dosage: UNK, COMPOUNDED PN 5 NIGHTS A WEEK
     Route: 042
  9. DEXTROSE [Suspect]
     Active Substance: DEXTROSE\DEXTROSE MONOHYDRATE
     Indication: Parenteral nutrition
     Dosage: UNK, COMPOUNDED PN 5 NIGHTS A WEEK
     Route: 042
  10. DEXTROSE [Suspect]
     Active Substance: DEXTROSE\DEXTROSE MONOHYDRATE
     Dosage: UNK, COMPOUNDED PN 5 NIGHTS A WEEK
     Route: 042
  11. DEXTROSE [Suspect]
     Active Substance: DEXTROSE\DEXTROSE MONOHYDRATE
     Dosage: UNK, COMPOUNDED PN 5 NIGHTS A WEEK
     Route: 042
  12. DEXTROSE [Suspect]
     Active Substance: DEXTROSE\DEXTROSE MONOHYDRATE
     Dosage: UNK, COMPOUNDED PN 5 NIGHTS A WEEK (STOP DATE:27 FEB 2023)
     Route: 042
  13. MAGNESIUM SULFATE [Suspect]
     Active Substance: MAGNESIUM SULFATE
     Indication: Parenteral nutrition
     Dosage: UNK,(BAG) COMPOUNDED PN 5 NIGHTS A WEEK (STOP DATE: 27 FEB 2023)
     Route: 042
  14. MAGNESIUM SULFATE [Suspect]
     Active Substance: MAGNESIUM SULFATE
     Dosage: UNK,COMPOUNDED PN 5 NIGHTS A WEEK (STOP DATE: 27 FEB 2023)
     Route: 042
  15. MAGNESIUM SULFATE [Suspect]
     Active Substance: MAGNESIUM SULFATE
     Dosage: UNK, (BAG) COMPOUNDED PN 5 NIGHTS A WEEK (STOP DATE: 27 FEB 2023)
     Route: 042
  16. AMINO ACIDS\DEXTROSE\ELECTROLYTES NOS [Suspect]
     Active Substance: AMINO ACIDS\DEXTROSE\ELECTROLYTES NOS
     Indication: Product used for unknown indication
     Dosage: 1650 MILLILITER (OVER 12 HOURS 2 NIGHTS, STOP DATE: 27 FEB 2023)
     Route: 042
  17. PEDITRACE [Suspect]
     Active Substance: CUPRIC CHLORIDE\MANGANESE CHLORIDE\POTASSIUM IODIDE\SODIUM FLUORIDE\SODIUM SELENITE\ZINC CHLORIDE
     Indication: Parenteral nutrition
     Dosage: UNK, COMPOUNDED PN 5 NIGHTS A WEEK (STOP DATE: 27 FEB 2023)
     Route: 042
  18. PEDITRACE [Suspect]
     Active Substance: CUPRIC CHLORIDE\MANGANESE CHLORIDE\POTASSIUM IODIDE\SODIUM FLUORIDE\SODIUM SELENITE\ZINC CHLORIDE
     Dosage: UNK, COMPOUNDED PN 5 NIGHTS A WEEK (STOP DATE: 27 FEB 2023)
     Route: 042
  19. PEDITRACE [Suspect]
     Active Substance: CUPRIC CHLORIDE\MANGANESE CHLORIDE\POTASSIUM IODIDE\SODIUM FLUORIDE\SODIUM SELENITE\ZINC CHLORIDE
     Dosage: UNK, COMPOUNDED PN 5 NIGHTS A WEEK (STOP DATE: 27 FEB 2023)
     Route: 042
  20. POTASSIUM CHLORIDE [Suspect]
     Active Substance: POTASSIUM CHLORIDE
     Indication: Parenteral nutrition
     Dosage: UNK, COMPOUNDED PN 5 NIGHTS A WEEK (STOP DATE: 27 FEB 2023)
     Route: 042
  21. POTASSIUM CHLORIDE [Suspect]
     Active Substance: POTASSIUM CHLORIDE
     Dosage: UNK, COMPOUNDED PN 5 NIGHTS A WEEK (STOP DATE: 27 FEB 2023)
     Route: 042
  22. POTASSIUM CHLORIDE [Suspect]
     Active Substance: POTASSIUM CHLORIDE
     Dosage: UNK, COMPOUNDED PN 5 NIGHTS A WEEK (STOP DATE: 27 FEB 2023)
     Route: 042
  23. SMOFLIPID [Suspect]
     Active Substance: FISH OIL\MEDIUM-CHAIN TRIGLYCERIDES\OLIVE OIL\SOYBEAN OIL
     Indication: Parenteral nutrition
     Dosage: UNK, COMPOUNDED PN 5 NIGHTS A WEEK (STOP DATE; 27 FEB 2023)
     Route: 042
  24. SMOFLIPID [Suspect]
     Active Substance: FISH OIL\MEDIUM-CHAIN TRIGLYCERIDES\OLIVE OIL\SOYBEAN OIL
     Dosage: UNK, COMPOUNDED PN 5 NIGHTS A WEEK (STOP DATE; 27 FEB 2023)
     Route: 042
  25. SMOFLIPID [Suspect]
     Active Substance: FISH OIL\MEDIUM-CHAIN TRIGLYCERIDES\OLIVE OIL\SOYBEAN OIL
     Dosage: UNK, COMPOUNDED PN 5 NIGHTS A WEEK (STOP DATE; 27 FEB 2023)
     Route: 042
  26. SODIUM CHLORIDE [Suspect]
     Active Substance: SODIUM CHLORIDE
     Indication: Parenteral nutrition
     Dosage: UNK, COMPOUNDED PN 5 NIGHTS A WEEK (STOP DATE: 27 FEB 2023)
     Route: 042
  27. SODIUM CHLORIDE [Suspect]
     Active Substance: SODIUM CHLORIDE
     Dosage: UNK, COMPOUNDED PN 5 NIGHTS A WEEK (STOP DATE: 27 FEB 2023)
     Route: 042
  28. SODIUM CHLORIDE [Suspect]
     Active Substance: SODIUM CHLORIDE
     Dosage: UNK, COMPOUNDED PN 5 NIGHTS A WEEK (STOP DATE: 27 FEB 2023)
     Route: 042
  29. SODIUM CHLORIDE [Suspect]
     Active Substance: SODIUM CHLORIDE
     Dosage: UNK, COMPOUNDED PN 5 NIGHTS A WEEK (STOP DATE: 27 FEB 2023)
     Route: 042
  30. SODIUM GLYCEROPHOSPHATE [Suspect]
     Active Substance: SODIUM GLYCEROPHOSPHATE
     Indication: Parenteral nutrition
     Dosage: UNK, COMPOUNDED PN 5 NIGHTS A WEEK (STOP DATE: 27 FEB 2023)
     Route: 042
  31. SODIUM GLYCEROPHOSPHATE [Suspect]
     Active Substance: SODIUM GLYCEROPHOSPHATE
     Dosage: UNK, COMPOUNDED PN 5 NIGHTS A WEEK (STOP DATE: 27 FEB 2023)
     Route: 042
  32. SODIUM GLYCEROPHOSPHATE [Suspect]
     Active Substance: SODIUM GLYCEROPHOSPHATE
     Dosage: UNK, COMPOUNDED PN 5 NIGHTS A WEEK (STOP DATE: 27 FEB 2023)
     Route: 042
  33. VITAMINS [Suspect]
     Active Substance: VITAMINS
     Indication: Parenteral nutrition
     Dosage: UNK, COMPOUNDED PN 5 NIGHTS A WEEK (STOP DATE: 27 FEB 2023)
     Route: 042
  34. VITAMINS [Suspect]
     Active Substance: VITAMINS
     Dosage: UNK, COMPOUNDED PN 5 NIGHTS A WEEK (STOP DATE: 27 FEB 2023)
     Route: 042
  35. VITAMINS [Suspect]
     Active Substance: VITAMINS
     Dosage: UNK, COMPOUNDED PN 5 NIGHTS A WEEK (STOP DATE: 27 FEB 2023)
     Route: 042
  36. ERGOCALCIFEROL\PHYTONADIONE\RETINOL\TOCOPHEROL [Suspect]
     Active Substance: ERGOCALCIFEROL\PHYTONADIONE\RETINOL\TOCOPHEROL
     Indication: Parenteral nutrition
     Dosage: UNK, COMPOUNDED PN 5 NIGHTS A WEEK (STOP DATE: 27 FEB 2023)
     Route: 042
  37. ERGOCALCIFEROL\PHYTONADIONE\RETINOL\TOCOPHEROL [Suspect]
     Active Substance: ERGOCALCIFEROL\PHYTONADIONE\RETINOL\TOCOPHEROL
     Dosage: UNK, COMPOUNDED PN 5 NIGHTS A WEEK (STOP DATE: 27 FEB 2023)
     Route: 042
  38. ERGOCALCIFEROL\PHYTONADIONE\RETINOL\TOCOPHEROL [Suspect]
     Active Substance: ERGOCALCIFEROL\PHYTONADIONE\RETINOL\TOCOPHEROL
     Dosage: UNK, COMPOUNDED PN 5 NIGHTS A WEEK (STOP DATE: 27 FEB 2023)
     Route: 042
  39. WATER [Suspect]
     Active Substance: WATER
     Indication: Parenteral nutrition
     Dosage: UNK, COMPOUNDED PN 5 NIGHTS A WEEK
     Route: 042
  40. WATER [Suspect]
     Active Substance: WATER
     Dosage: UNK, COMPOUNDED PN 5 NIGHTS A WEEK
     Route: 042
  41. WATER [Suspect]
     Active Substance: WATER
     Dosage: UNK, COMPOUNDED PN 5 NIGHTS A WEEK
     Route: 042
  42. FERRIC CHLORIDE [Suspect]
     Active Substance: FERRIC CHLORIDE
     Indication: Product used for unknown indication
     Dosage: UNK (1.79 UMOL/ML, FRESENIUS KABI)
     Route: 065
  43. STERILE WATER [Suspect]
     Active Substance: WATER
     Indication: Parenteral nutrition
     Dosage: UNK, COMPOUNDED PN 5 NIGHTS A WEEK
     Route: 042
  44. STERILE WATER [Suspect]
     Active Substance: WATER
     Dosage: UNK, COMPOUNDED PN 5 NIGHTS A WEEK
     Route: 042
  45. STERILE WATER [Suspect]
     Active Substance: WATER
     Dosage: UNK, COMPOUNDED PN 5 NIGHTS A WEEK
     Route: 042
  46. ESOMEPRAZOLE [Concomitant]
     Active Substance: ESOMEPRAZOLE
     Indication: Gastrooesophageal reflux disease
     Dosage: 20 MILLIGRAM, QD
     Route: 050
     Dates: start: 20230302
  47. ASCORBIC ACID\VITAMIN B COMPLEX [Concomitant]
     Active Substance: ASCORBIC ACID\VITAMIN B COMPLEX
     Indication: Product used for unknown indication
     Dosage: UNK
     Route: 065

REACTIONS (15)
  - Blood urea increased [Recovered/Resolved]
  - Electrolyte imbalance [Unknown]
  - Blood phosphorus decreased [Unknown]
  - Hypernatraemia [Recovered/Resolved]
  - Hypercalcaemia [Recovered/Resolved]
  - Pain [Recovering/Resolving]
  - Drug intolerance [Unknown]
  - Alanine aminotransferase increased [Recovered/Resolved]
  - Blood magnesium decreased [Unknown]
  - Blood potassium decreased [Unknown]
  - Blood creatinine increased [Unknown]
  - Cholelithiasis [Unknown]
  - Klebsiella test positive [Unknown]
  - Dehydration [Unknown]
  - Blood triglycerides increased [Unknown]

NARRATIVE: CASE EVENT DATE: 20230111
